FAERS Safety Report 8986681 (Version 1)
Quarter: 2012Q4

REPORT INFORMATION
  Report Type: 
  Country: NO (occurrence: NO)
  Receive Date: 20121227
  Receipt Date: 20121227
  Transmission Date: 20130627
  Serious: Yes (Hospitalization)
  Sender: FDA-Public Use
  Company Number: NO-ACCORD-015679

PATIENT
  Age: 72 Year
  Sex: Male

DRUGS (7)
  1. IRINOTECAN HYDROCHLORIDE [Suspect]
     Indication: COLON CANCER
     Dates: start: 20121105
  2. CALCIUM FOLINATE [Concomitant]
     Dates: start: 20121105
  3. ONDANSETRON [Concomitant]
     Dates: start: 20121105
  4. FORTECORTIN [Concomitant]
     Dates: start: 20121105
  5. ATROPIN [Concomitant]
     Dates: start: 20121105
  6. AVASTIN [Suspect]
     Indication: COLON CANCER
     Dates: start: 20121105
  7. FLUOROURACIL [Suspect]
     Indication: COLON CANCER
     Dates: start: 20121105

REACTIONS (2)
  - Muscular weakness [Recovering/Resolving]
  - Muscle twitching [Recovered/Resolved]
